FAERS Safety Report 9435511 (Version 3)
Quarter: 2013Q3

REPORT INFORMATION
  Report Type: Report from Study
  Country: FR (occurrence: FR)
  Receive Date: 20130801
  Receipt Date: 20130805
  Transmission Date: 20140515
  Serious: Yes (Hospitalization, Other)
  Sender: FDA-Public Use
  Company Number: FR-ROCHE-1246453

PATIENT
  Age: 48 Year
  Sex: Male
  Weight: 59 kg

DRUGS (10)
  1. RITUXIMAB [Suspect]
     Indication: LYMPHOMA
     Dosage: LAST DOSE PRIOR TO SAE: 03/JUL/2013
     Route: 065
     Dates: start: 20130703, end: 20130716
  2. RITUXIMAB [Suspect]
     Route: 065
     Dates: start: 20130725
  3. CYCLOPHOSPHAMIDE [Suspect]
     Indication: LYMPHOMA
     Route: 065
     Dates: start: 20130703, end: 20130716
  4. CYCLOPHOSPHAMIDE [Suspect]
     Route: 065
     Dates: start: 20130725
  5. DOXORUBICIN [Suspect]
     Indication: LYMPHOMA
     Route: 065
     Dates: start: 20130703, end: 20130716
  6. DOXORUBICIN [Suspect]
     Route: 065
     Dates: start: 20130725
  7. VINCRISTINE [Suspect]
     Indication: LYMPHOMA
     Route: 065
     Dates: start: 20130703, end: 20130716
  8. VINCRISTINE [Suspect]
     Route: 065
     Dates: start: 20130725
  9. PREDNISOLONE [Suspect]
     Indication: LYMPHOMA
     Route: 065
     Dates: start: 20130703, end: 20130716
  10. PREDNISOLONE [Suspect]
     Route: 065
     Dates: start: 20130725

REACTIONS (2)
  - Febrile bone marrow aplasia [Recovered/Resolved]
  - Cytokine release syndrome [Recovered/Resolved with Sequelae]
